FAERS Safety Report 15546771 (Version 1)
Quarter: 2018Q4

REPORT INFORMATION
  Report Type: Spontaneous
  Country: US (occurrence: US)
  Receive Date: 20181018
  Receipt Date: 20181018
  Transmission Date: 20190205
  Serious: No
  Sender: FDA-Public Use
  Company Number: None

PATIENT
  Age: 59 Year
  Sex: Female

DRUGS (1)
  1. RASUVO [Suspect]
     Active Substance: METHOTREXATE SODIUM
     Indication: RHEUMATOID ARTHRITIS
     Dosage: ?          OTHER DOSE:10MG (0.2ML) ;?
     Route: 058
     Dates: start: 201808

REACTIONS (5)
  - Limb operation [None]
  - Abdominal pain upper [None]
  - Headache [None]
  - Lethargy [None]
  - Nausea [None]
